FAERS Safety Report 7905027-0 (Version None)
Quarter: 2011Q4

REPORT INFORMATION
  Report Type: 
  Country: None (occurrence: None)
  Receive Date: 20111109
  Receipt Date: 20111104
  Transmission Date: 20120403
  Serious: Yes (Other)
  Sender: FDA-Public Use
  Company Number: PHEH2011US008686

PATIENT
  Sex: Female

DRUGS (10)
  1. SINGULAIR [Concomitant]
     Dosage: 1XDAY
  2. OMEPRAZOLE [Concomitant]
     Dosage: 2XDAY
  3. LASIX [Concomitant]
  4. LORAZEPAM [Concomitant]
     Dosage: 3XDAY AS NEEDED
  5. GLEEVEC [Suspect]
     Dosage: 400 MG, 1XDAY
     Dates: start: 20090301
  6. FEXOFENADINE [Concomitant]
     Dosage: 1XDAY
  7. POTASSIUM [Concomitant]
  8. METFORMIN HCL [Concomitant]
     Dosage: 2XDAY
  9. ASTELIN [Concomitant]
  10. VENTOLIN [Concomitant]

REACTIONS (1)
  - EAR INFECTION [None]
